FAERS Safety Report 21503840 (Version 1)
Quarter: 2022Q4

REPORT INFORMATION
  Report Type: Spontaneous
  Country: US (occurrence: None)
  Receive Date: 20221025
  Receipt Date: 20221025
  Transmission Date: 20230113
  Serious: Yes (Death)
  Sender: FDA-Public Use
  Company Number: None

PATIENT
  Sex: Female
  Weight: 57.6 kg

DRUGS (15)
  1. FLUOROURACIL [Suspect]
     Active Substance: FLUOROURACIL
  2. IRINOTECAN HYDROCHLORIDE [Concomitant]
     Active Substance: IRINOTECAN HYDROCHLORIDE
  3. LEUCOVORIN CALCIUM [Concomitant]
     Active Substance: LEUCOVORIN CALCIUM
  4. NORCO [Concomitant]
     Active Substance: ACETAMINOPHEN\HYDROCODONE BITARTRATE
  5. AMLODIPINE [Concomitant]
     Active Substance: AMLODIPINE BESYLATE
  6. CHOLECALCIFEROL [Concomitant]
  7. COMPAZINE [Concomitant]
  8. DECADRON [Concomitant]
  9. LOMOTIL [Concomitant]
  10. LOPERAMIDE [Concomitant]
  11. LOSARTAN [Concomitant]
  12. MULTIVITAMIN [Concomitant]
  13. NEXIUM [Concomitant]
     Active Substance: ESOMEPRAZOLE MAGNESIUM
  14. SIMVASTATIN [Concomitant]
  15. ZOFRAN [Concomitant]

REACTIONS (21)
  - Diarrhoea [None]
  - Nausea [None]
  - Dehydration [None]
  - Anaemia [None]
  - Platelet count decreased [None]
  - Treatment delayed [None]
  - General physical health deterioration [None]
  - Dysarthria [None]
  - Gait inability [None]
  - Aphasia [None]
  - Hypophagia [None]
  - Anal incontinence [None]
  - Urinary incontinence [None]
  - Somnolence [None]
  - Hypersomnia [None]
  - Back pain [None]
  - Fatigue [None]
  - Decreased appetite [None]
  - Asthenia [None]
  - Depressed level of consciousness [None]
  - Lethargy [None]

NARRATIVE: CASE EVENT DATE: 20221012
